FAERS Safety Report 5042058-5 (Version None)
Quarter: 2006Q2

REPORT INFORMATION
  Report Type: 
  Country: None (occurrence: None)
  Receive Date: 20060630
  Receipt Date: 20060623
  Transmission Date: 20061013
  Serious: No
  Sender: FDA-Public Use
  Company Number: 2006-05-0783

PATIENT
  Age: 39 Month
  Sex: Female
  Weight: 15 kg

DRUGS (2)
  1. AERIUS (DESLORATADINE) TABLETS [Suspect]
     Indication: RASH PRURITIC
     Dosage: 1/4 OF TABLET ORAL
     Route: 048
     Dates: start: 20060510, end: 20060510
  2. PARFENAC [Concomitant]

REACTIONS (5)
  - ARTHRALGIA [None]
  - BALANCE DISORDER [None]
  - FALL [None]
  - PAIN [None]
  - PAIN IN EXTREMITY [None]
